FAERS Safety Report 19477854 (Version 5)
Quarter: 2024Q4

REPORT INFORMATION
  Report Type: Spontaneous
  Country: DE (occurrence: DE)
  Receive Date: 20210630
  Receipt Date: 20241230
  Transmission Date: 20250115
  Serious: Yes (Other)
  Sender: MYLAN
  Company Number: DE-PFM-2019-14913

PATIENT

DRUGS (12)
  1. BUSULFAN [Suspect]
     Active Substance: BUSULFAN
     Indication: Bone marrow conditioning regimen
     Dosage: UNK,(CONCENTRATE FOR SOLUTION FOR INFUSION)
     Route: 065
  2. ETOPOSIDE [Suspect]
     Active Substance: ETOPOSIDE
     Indication: Bone marrow conditioning regimen
     Dosage: UNK
     Route: 065
  3. GEMTUZUMAB OZOGAMICIN [Suspect]
     Active Substance: GEMTUZUMAB OZOGAMICIN
     Indication: Monoclonal antibody chemoimmunoconjugate therapy
     Dosage: TWICE WITHIN TWO WEEKS
     Route: 065
  4. CYCLOPHOSPHAMIDE [Suspect]
     Active Substance: CYCLOPHOSPHAMIDE
     Indication: Bone marrow conditioning regimen
     Dosage: UNK
     Route: 065
  5. DARATUMUMAB [Suspect]
     Active Substance: DARATUMUMAB
     Indication: Monoclonal antibody chemoimmunoconjugate therapy
     Dosage: ALTERNATING TWICE WITHIN TWO WEEKS
     Route: 065
  6. FLUDARABINE PHOSPHATE [Suspect]
     Active Substance: FLUDARABINE PHOSPHATE
     Indication: Bone marrow conditioning regimen
     Dosage: UNK
     Route: 065
  7. MERCAPTOPURINE [Suspect]
     Active Substance: MERCAPTOPURINE
     Indication: Leukaemia recurrent
     Dosage: UNK
     Route: 048
  8. BLINATUMOMAB [Suspect]
     Active Substance: BLINATUMOMAB
     Indication: Acute lymphocytic leukaemia
     Dosage: UNK
     Route: 065
  9. CYTARABINE [Suspect]
     Active Substance: CYTARABINE
     Indication: Bone marrow conditioning regimen
     Dosage: UNK
     Route: 065
  10. CLOFARABINE [Suspect]
     Active Substance: CLOFARABINE
     Indication: Bone marrow conditioning regimen
     Dosage: UNK
     Route: 065
  11. DOXORUBICIN HYDROCHLORIDE [Suspect]
     Active Substance: DOXORUBICIN HYDROCHLORIDE
     Indication: Bone marrow conditioning regimen
     Dosage: UNK
     Route: 065
  12. INOTUZUMAB OZOGAMICIN [Suspect]
     Active Substance: INOTUZUMAB OZOGAMICIN
     Indication: Monoclonal antibody chemoimmunoconjugate therapy
     Dosage: UNK, QW
     Route: 065

REACTIONS (3)
  - Renal impairment [Recovered/Resolved]
  - Venoocclusive liver disease [Recovered/Resolved]
  - Lung disorder [Recovered/Resolved]
